FAERS Safety Report 10042981 (Version 11)
Quarter: 2021Q2

REPORT INFORMATION
  Report Type: Other
  Country: US (occurrence: US)
  Receive Date: 20140328
  Receipt Date: 20210614
  Transmission Date: 20210716
  Serious: Yes (Death, Other)
  Sender: FDA-Public Use
  Company Number: US-ROCHE-635591

PATIENT

DRUGS (2)
  1. RITUXIMAB. [Suspect]
     Active Substance: RITUXIMAB
     Indication: NON-HODGKIN^S LYMPHOMA UNSPECIFIED HISTOLOGY INDOLENT
     Dosage: FORM: INFUSION; TAKEN OVER 4?8 HOURS FREQUENCY: ON DAY 1 OF EACH 28 DAY CYCLE
     Route: 042
  2. LENALIDOMIDE [Suspect]
     Active Substance: LENALIDOMIDE
     Indication: NON-HODGKIN^S LYMPHOMA UNSPECIFIED HISTOLOGY INDOLENT
     Dosage: ADMINISTERED ON DAYS 1?21 ON A 28 DAY CYCLE
     Route: 048

REACTIONS (25)
  - Respiratory failure [Unknown]
  - Memory impairment [Unknown]
  - Oedema [Unknown]
  - Infection [Unknown]
  - Dizziness [Unknown]
  - Sepsis [Unknown]
  - Pneumonia [Unknown]
  - Myalgia [Unknown]
  - Neuropathy peripheral [Unknown]
  - Malignant neoplasm progression [Fatal]
  - Fatigue [Unknown]
  - Dyspnoea [Unknown]
  - Lymphopenia [Unknown]
  - Thrombosis [Unknown]
  - Pain [Unknown]
  - Cough [Unknown]
  - Tumour lysis syndrome [Unknown]
  - Thrombocytopenia [Unknown]
  - Pyrexia [Unknown]
  - Upper respiratory tract infection [Unknown]
  - Hyponatraemia [Unknown]
  - Infusion related reaction [Unknown]
  - Arterial thrombosis [Unknown]
  - Leukopenia [Unknown]
  - Neutropenia [Unknown]
